FAERS Safety Report 5032609-9 (Version None)
Quarter: 2006Q2

REPORT INFORMATION
  Report Type: 
  Country: None (occurrence: None)
  Receive Date: 20060620
  Receipt Date: 20060612
  Transmission Date: 20061013
  Serious: Yes (Other)
  Sender: FDA-Public Use
  Company Number: 2006074616

PATIENT
  Age: 59 Year
  Sex: Female
  Weight: 66.6788 kg

DRUGS (8)
  1. LYRICA [Suspect]
     Indication: PAIN
     Dosage: 150 MG (75 MG, 2 IN 1 D), ORAL
     Route: 048
     Dates: start: 20060101
  2. ZOLOFT [Concomitant]
  3. VYTORIN [Concomitant]
  4. LASIX [Concomitant]
  5. KEMADRIN [Concomitant]
  6. LUNESTA [Concomitant]
  7. COMBIVENT [Concomitant]
  8. SEREVENT [Concomitant]

REACTIONS (5)
  - FALL [None]
  - FATIGUE [None]
  - SOMNOLENCE [None]
  - SUDDEN ONSET OF SLEEP [None]
  - WEIGHT INCREASED [None]
